FAERS Safety Report 9719998 (Version 1)
Quarter: 2013Q4

REPORT INFORMATION
  Report Type: Spontaneous
  Country: US (occurrence: US)
  Receive Date: 20131128
  Receipt Date: 20131128
  Transmission Date: 20140711
  Serious: No
  Sender: FDA-Public Use
  Company Number: US-009507513-1311USA009307

PATIENT
  Age: 6 Year
  Sex: Male

DRUGS (1)
  1. DULERA [Suspect]

REACTIONS (2)
  - Drug administered to patient of inappropriate age [Unknown]
  - No adverse event [Unknown]
